FAERS Safety Report 18564284 (Version 2)
Quarter: 2020Q4

REPORT INFORMATION
  Report Type: Spontaneous
  Country: US (occurrence: US)
  Receive Date: 20201201
  Receipt Date: 20201229
  Transmission Date: 20210114
  Serious: No
  Sender: FDA-Public Use
  Company Number: US-IRONSHORE-JOR-2020-000110

PATIENT
  Age: 10 Year
  Sex: Male

DRUGS (3)
  1. JORNAY PM EXTENDED-RELEASE [Suspect]
     Active Substance: METHYLPHENIDATE HYDROCHLORIDE
     Dosage: 60 MILLIGRAM
     Route: 048
     Dates: start: 20201112
  2. JORNAY PM EXTENDED-RELEASE [Suspect]
     Active Substance: METHYLPHENIDATE HYDROCHLORIDE
     Dosage: 40 MILLIGRAM
     Route: 048
     Dates: start: 201911, end: 20201112
  3. JORNAY PM EXTENDED-RELEASE [Suspect]
     Active Substance: METHYLPHENIDATE HYDROCHLORIDE
     Indication: PRODUCT USED FOR UNKNOWN INDICATION
     Dosage: 20 MILLIGRAM
     Route: 048
     Dates: start: 20191114, end: 201911

REACTIONS (4)
  - Drug tolerance [Unknown]
  - Irritability [Unknown]
  - Hallucination [Unknown]
  - Limb discomfort [Unknown]

NARRATIVE: CASE EVENT DATE: 201911
